FAERS Safety Report 7770709-0 (Version None)
Quarter: 2011Q3

REPORT INFORMATION
  Report Type: 
  Country: None (occurrence: None)
  Receive Date: 20110922
  Receipt Date: 20100902
  Transmission Date: 20111222
  Serious: No
  Sender: FDA-Public Use
  Company Number: US-ASTRAZENECA-2010SE41381

PATIENT
  Sex: Female
  Weight: 79.4 kg

DRUGS (2)
  1. MOOD STABILIZER [Concomitant]
  2. SEROQUEL [Suspect]
     Indication: HALLUCINATION, AUDITORY
     Dosage: 600-900 MILLIGRAM
     Route: 048
     Dates: end: 20090101

REACTIONS (2)
  - DRUG DOSE OMISSION [None]
  - SOMNOLENCE [None]
